FAERS Safety Report 9506546 (Version 4)
Quarter: 2014Q1

REPORT INFORMATION
  Report Type: Report from Study
  Country: AU (occurrence: AU)
  Receive Date: 20130906
  Receipt Date: 20140109
  Transmission Date: 20141002
  Serious: Yes (Hospitalization)
  Sender: FDA-Public Use
  Company Number: PHHY2013AU097977

PATIENT
  Sex: Male

DRUGS (2)
  1. CLOZARIL [Suspect]
     Dosage: 350 MG,
     Dates: start: 20130702
  2. CLOZARIL [Suspect]
     Dosage: UNK
     Dates: end: 20140102

REACTIONS (1)
  - Mental impairment [Unknown]
